FAERS Safety Report 12412812 (Version 3)
Quarter: 2016Q3

REPORT INFORMATION
  Report Type: Spontaneous
  Country: US (occurrence: US)
  Receive Date: 20160527
  Receipt Date: 20160812
  Transmission Date: 20161109
  Serious: No
  Sender: FDA-Public Use
  Company Number: US-PFIZER INC-2016259664

PATIENT
  Age: 63 Year
  Sex: Female

DRUGS (7)
  1. ESTRING [Suspect]
     Active Substance: ESTRADIOL
     Indication: MICTURITION URGENCY
  2. DIFLUCAN [Concomitant]
     Active Substance: FLUCONAZOLE
     Dosage: UNK, 3 COURSES
     Route: 048
  3. BORIC ACID [Concomitant]
     Active Substance: BORIC ACID
     Dosage: UNK (MULTIPLE)
  4. TERCONAZOLE. [Concomitant]
     Active Substance: TERCONAZOLE
     Dosage: UNK (VAGINAL FOR 3 COURSES)
     Route: 067
  5. ESTRING [Suspect]
     Active Substance: ESTRADIOL
     Indication: DYSPAREUNIA
  6. ESTRING [Suspect]
     Active Substance: ESTRADIOL
     Indication: VULVOVAGINAL DRYNESS
     Dosage: UNK (INSERTED RING AS DIRECTED)
     Dates: start: 20160425
  7. ACETIC ACID. [Concomitant]
     Active Substance: ACETIC ACID
     Dosage: UNK, DOUCHE; MULTIPLE

REACTIONS (3)
  - Drug ineffective [Not Recovered/Not Resolved]
  - Fungal infection [Not Recovered/Not Resolved]
  - Vulvovaginal burning sensation [Not Recovered/Not Resolved]

NARRATIVE: CASE EVENT DATE: 201605
